FAERS Safety Report 11684825 (Version 1)
Quarter: 2015Q4

REPORT INFORMATION
  Report Type: Spontaneous
  Country: US (occurrence: US)
  Receive Date: 20151029
  Receipt Date: 20151029
  Transmission Date: 20160304
  Serious: Yes (Hospitalization)
  Sender: FDA-Public Use
  Company Number: US-ROCHE-1638606

PATIENT
  Age: 76 Year
  Sex: Male
  Weight: 69.01 kg

DRUGS (1)
  1. ESBRIET [Suspect]
     Active Substance: PIRFENIDONE
     Indication: IDIOPATHIC PULMONARY FIBROSIS
     Route: 048
     Dates: start: 20150901

REACTIONS (2)
  - Transient ischaemic attack [Unknown]
  - Dysphonia [Unknown]

NARRATIVE: CASE EVENT DATE: 20151006
